FAERS Safety Report 8669022 (Version 6)
Quarter: 2012Q4

REPORT INFORMATION
  Report Type: 
  Country: US (occurrence: US)
  Receive Date: 20120717
  Receipt Date: 20120919
  Transmission Date: 20130627
  Serious: Yes (Hospitalization, Other)
  Sender: FDA-Public Use
  Company Number: US-PFIZER INC-2012167057

PATIENT
  Sex: Male

DRUGS (5)
  1. GLUCOTROL XL [Suspect]
     Dosage: UNK
  2. LIPITOR [Suspect]
     Dosage: UNK
  3. PROTONIX [Suspect]
     Dosage: UNK
  4. LYRICA [Suspect]
     Indication: MUSCLE INJURY
     Dosage: 50 mg, 3x/day
     Route: 048
     Dates: start: 2010
  5. LYRICA [Suspect]
     Indication: VEIN DISORDER

REACTIONS (1)
  - Cardiac disorder [Unknown]
